FAERS Safety Report 7366226-2 (Version None)
Quarter: 2011Q1

REPORT INFORMATION
  Report Type: 
  Country: None (occurrence: None)
  Receive Date: 20110322
  Receipt Date: 20110308
  Transmission Date: 20110831
  Serious: Yes (Hospitalization)
  Sender: FDA-Public Use
  Company Number: US-JNJFOC-20090605296

PATIENT
  Age: 9 Year
  Sex: Female
  Weight: 29.5 kg

DRUGS (14)
  1. HUMIRA [Concomitant]
  2. PREDNISONE [Concomitant]
  3. ZYRTEC [Concomitant]
  4. ENTERAL FEEDING [Concomitant]
  5. INFLIXIMAB [Suspect]
     Route: 042
  6. INFLIXIMAB [Suspect]
     Route: 042
  7. INFLIXIMAB [Suspect]
     Route: 042
  8. IRON [Concomitant]
  9. 5-AMINOSALICYLIC ACID [Concomitant]
     Route: 048
  10. FISH OIL [Concomitant]
  11. INFLIXIMAB [Suspect]
     Indication: INFLAMMATORY BOWEL DISEASE
     Route: 042
  12. METRONIDAZOLE [Concomitant]
  13. PREVACID [Concomitant]
  14. MULTIPLE VITAMIN [Concomitant]

REACTIONS (2)
  - CRYPTOSPORIDIOSIS INFECTION [None]
  - CROHN'S DISEASE [None]
